FAERS Safety Report 13061254 (Version 2)
Quarter: 2017Q2

REPORT INFORMATION
  Report Type: Report from Study
  Country: None (occurrence: US)
  Receive Date: 20161226
  Receipt Date: 20170606
  Transmission Date: 20170830
  Serious: Yes (Hospitalization, Disabling, Other)
  Sender: FDA-Public Use
  Company Number: US-ABBVIE-16K-163-1818518-00

PATIENT
  Age: 40 Year
  Sex: Female
  Weight: 68.1 kg

DRUGS (1)
  1. HUMIRA [Suspect]
     Active Substance: ADALIMUMAB
     Indication: PRODUCT USED FOR UNKNOWN INDICATION
     Route: 058

REACTIONS (15)
  - Bone fragmentation [Unknown]
  - Malabsorption [Unknown]
  - Syncope [Recovered/Resolved]
  - Asthenia [Unknown]
  - Fall [Recovering/Resolving]
  - Fall [Recovering/Resolving]
  - Malnutrition [Unknown]
  - Dehydration [Unknown]
  - Fall [Recovered/Resolved]
  - Pain [Recovering/Resolving]
  - Intervertebral disc protrusion [Unknown]
  - Spinal column stenosis [Unknown]
  - Mobility decreased [Recovering/Resolving]
  - Syncope [Recovered/Resolved]
  - Syncope [Recovering/Resolving]

NARRATIVE: CASE EVENT DATE: 201610
